FAERS Safety Report 21857080 (Version 2)
Quarter: 2023Q2

REPORT INFORMATION
  Report Type: Report from Study
  Country: US (occurrence: US)
  Receive Date: 20230113
  Receipt Date: 20230407
  Transmission Date: 20230722
  Serious: No
  Sender: FDA-Public Use
  Company Number: US-ABBVIE-4233258

PATIENT
  Sex: Female
  Weight: 77.11 kg

DRUGS (1)
  1. RINVOQ [Suspect]
     Active Substance: UPADACITINIB
     Indication: Rheumatoid arthritis
     Route: 048

REACTIONS (4)
  - Nasopharyngitis [Unknown]
  - Seasonal allergy [Unknown]
  - Oropharyngeal pain [Unknown]
  - Increased tendency to bruise [Unknown]
